FAERS Safety Report 4474319-2 (Version None)
Quarter: 2004Q4

REPORT INFORMATION
  Report Type: 
  Country: None (occurrence: None)
  Receive Date: 20041012
  Receipt Date: 20040930
  Transmission Date: 20050328
  Serious: Yes (Other)
  Sender: FDA-Public Use
  Company Number: 2004-09-0654

PATIENT
  Sex: Female

DRUGS (1)
  1. TEMODAL [Suspect]

REACTIONS (1)
  - NO ADVERSE DRUG EFFECT [None]
